FAERS Safety Report 11464102 (Version 1)
Quarter: 2015Q3

REPORT INFORMATION
  Report Type: Spontaneous
  Country: US (occurrence: US)
  Receive Date: 20150831
  Receipt Date: 20150831
  Transmission Date: 20151125
  Serious: No
  Sender: FDA-Public Use
  Company Number: US-ELI_LILLY_AND_COMPANY-US201106005705

PATIENT
  Age: 48 Year
  Sex: Female

DRUGS (4)
  1. CYMBALTA [Suspect]
     Active Substance: DULOXETINE HYDROCHLORIDE
     Indication: DEPRESSION
     Dosage: 30 MG, QD
     Dates: start: 20110426
  2. ENABLEX                            /01760402/ [Concomitant]
     Indication: DYSURIA
  3. CYMBALTA [Suspect]
     Active Substance: DULOXETINE HYDROCHLORIDE
     Dosage: 60 MG, QD
  4. ZOLOFT [Concomitant]
     Active Substance: SERTRALINE HYDROCHLORIDE
     Indication: DEPRESSION

REACTIONS (6)
  - Pruritus [Unknown]
  - Dysuria [Unknown]
  - Drug ineffective [Unknown]
  - Mood altered [Unknown]
  - Feeling abnormal [Unknown]
  - Crying [Unknown]

NARRATIVE: CASE EVENT DATE: 20110426
